FAERS Safety Report 17265746 (Version 1)
Quarter: 2020Q1

REPORT INFORMATION
  Report Type: Spontaneous
  Country: US (occurrence: US)
  Receive Date: 20200114
  Receipt Date: 20200114
  Transmission Date: 20200409
  Serious: Yes (Other)
  Sender: FDA-Public Use
  Company Number: US-ASTRAZENECA-2020SE03523

PATIENT
  Age: 698 Month
  Sex: Male
  Weight: 97.5 kg

DRUGS (5)
  1. EXGEVA [Concomitant]
     Indication: OSTEOSCLEROSIS
     Dates: start: 201807
  2. XARELTO [Concomitant]
     Active Substance: RIVAROXABAN
     Indication: ANTICOAGULANT THERAPY
     Route: 048
     Dates: start: 2019
  3. CALCIUM [Concomitant]
     Active Substance: CALCIUM
     Indication: BLOOD CALCIUM ABNORMAL
     Route: 048
     Dates: start: 201808
  4. TAGRISSO [Suspect]
     Active Substance: OSIMERTINIB
     Indication: LUNG CARCINOMA CELL TYPE UNSPECIFIED STAGE IV
     Route: 048
     Dates: start: 201806
  5. MULTIVITAMINS [Concomitant]
     Active Substance: VITAMINS
     Indication: FATIGUE
     Route: 048
     Dates: start: 201910

REACTIONS (10)
  - Lymphadenopathy [Unknown]
  - Vision blurred [Not Recovered/Not Resolved]
  - Fatigue [Unknown]
  - Thrombosis [Unknown]
  - Malignant neoplasm progression [Unknown]
  - Blood calcium decreased [Unknown]
  - Metastases to liver [Unknown]
  - Drug ineffective [Unknown]
  - Metastases to bone [Unknown]
  - Platelet count decreased [Unknown]

NARRATIVE: CASE EVENT DATE: 201808
